FAERS Safety Report 21275300 (Version 6)
Quarter: 2022Q4

REPORT INFORMATION
  Report Type: Report from Study
  Country: US (occurrence: US)
  Receive Date: 20220831
  Receipt Date: 20221206
  Transmission Date: 20230112
  Serious: Yes (Hospitalization, Other)
  Sender: FDA-Public Use
  Company Number: US-TAKEDA-2022TUS058501

PATIENT
  Age: 64 Year
  Sex: Female
  Weight: 47 kg

DRUGS (42)
  1. TEDUGLUTIDE [Suspect]
     Active Substance: TEDUGLUTIDE
     Indication: Short-bowel syndrome
     Dosage: 2 MILLIGRAM, QD
     Route: 042
     Dates: start: 20130404, end: 20171206
  2. TEDUGLUTIDE [Suspect]
     Active Substance: TEDUGLUTIDE
     Indication: Short-bowel syndrome
     Dosage: 2 MILLIGRAM, QD
     Route: 042
     Dates: start: 20130404, end: 20171206
  3. TEDUGLUTIDE [Suspect]
     Active Substance: TEDUGLUTIDE
     Indication: Short-bowel syndrome
     Dosage: 2 MILLIGRAM, QD
     Route: 042
     Dates: start: 20130404, end: 20171206
  4. TEDUGLUTIDE [Suspect]
     Active Substance: TEDUGLUTIDE
     Indication: Short-bowel syndrome
     Dosage: 2 MILLIGRAM, QD
     Route: 042
     Dates: start: 20130404, end: 20171206
  5. TEDUGLUTIDE [Suspect]
     Active Substance: TEDUGLUTIDE
     Dosage: 2 MILLIGRAM, 4/WEEK
     Route: 042
     Dates: start: 20180227
  6. TEDUGLUTIDE [Suspect]
     Active Substance: TEDUGLUTIDE
     Dosage: 2 MILLIGRAM, 4/WEEK
     Route: 042
     Dates: start: 20180227
  7. TEDUGLUTIDE [Suspect]
     Active Substance: TEDUGLUTIDE
     Dosage: 2 MILLIGRAM, 4/WEEK
     Route: 042
     Dates: start: 20180227
  8. TEDUGLUTIDE [Suspect]
     Active Substance: TEDUGLUTIDE
     Dosage: 2 MILLIGRAM, 4/WEEK
     Route: 042
     Dates: start: 20180227
  9. FORTEO [Concomitant]
     Active Substance: TERIPARATIDE
     Indication: Osteoporosis
     Dosage: 20 MILLIGRAM, QD
     Route: 058
     Dates: start: 20220709
  10. FORTEO [Concomitant]
     Active Substance: TERIPARATIDE
     Dosage: 600 MICROGRAM
     Route: 058
     Dates: start: 20170823
  11. AUGMENTIN [Concomitant]
     Active Substance: AMOXICILLIN\CLAVULANATE POTASSIUM
     Indication: Gastroenteritis
     Dosage: 500 MILLIGRAM, Q12H
     Route: 048
     Dates: start: 20220709, end: 20220714
  12. NESINA [Concomitant]
     Active Substance: ALOGLIPTIN BENZOATE
     Indication: Diabetes mellitus
     Dosage: 6.25 MILLIGRAM, QD
     Route: 048
     Dates: start: 20220709
  13. ACETAMINOPHEN [Concomitant]
     Active Substance: ACETAMINOPHEN
     Indication: Pain
     Dosage: 325 MILLIGRAM
     Route: 048
     Dates: start: 20220709, end: 20220713
  14. ASCORBIC ACID [Concomitant]
     Active Substance: ASCORBIC ACID
     Indication: Hypovitaminosis
     Dosage: 100 MILLIGRAM, QD
     Route: 048
     Dates: start: 20100702
  15. CARVEDILOL [Concomitant]
     Active Substance: CARVEDILOL
     Indication: Cardiomyopathy
     Dosage: 6.25 MILLIGRAM, QD
     Route: 048
     Dates: start: 20171010
  16. VITAMIN B12 [Concomitant]
     Active Substance: CYANOCOBALAMIN
     Indication: Hypovitaminosis
     Dosage: 1000 MICROGRAM
     Route: 030
     Dates: start: 20160909
  17. DAPAGLIFLOZIN [Concomitant]
     Active Substance: DAPAGLIFLOZIN
     Indication: Diabetes mellitus
     Dosage: 10 MILLIGRAM, QD
     Route: 048
     Dates: start: 20170830, end: 20220709
  18. DIGOXIN [Concomitant]
     Active Substance: DIGOXIN
     Indication: Cardiomyopathy
     Dosage: 125 MICROGRAM, QD
     Route: 048
     Dates: start: 20101015
  19. ERGOCALCIFEROL [Concomitant]
     Active Substance: ERGOCALCIFEROL
     Indication: Hypovitaminosis
     Dosage: 50000 INTERNATIONAL UNIT, 1/WEEK
     Route: 048
     Dates: start: 20160919
  20. FENOFIBRATE [Concomitant]
     Active Substance: FENOFIBRATE
     Indication: Hyperlipidaemia
     Dosage: 160 MILLIGRAM, QD
     Route: 048
     Dates: start: 20110329, end: 20220802
  21. LISINOPRIL [Concomitant]
     Active Substance: LISINOPRIL
     Indication: Cardiomyopathy
     Dosage: 2.5 MILLIGRAM, QD
     Route: 048
     Dates: start: 20150402
  22. LOPERAMIDE [Concomitant]
     Active Substance: LOPERAMIDE
     Indication: Drainage
     Dosage: 30 MILLILITER, QID
     Route: 048
     Dates: start: 20151230, end: 20220709
  23. LOPERAMIDE [Concomitant]
     Active Substance: LOPERAMIDE
     Indication: Diarrhoea
     Dosage: 8 MILLIGRAM, Q6HR
     Route: 048
     Dates: start: 20221104
  24. MAGNESIUM SULFATE [Concomitant]
     Active Substance: MAGNESIUM SULFATE
     Indication: Hypomagnesaemia
     Dosage: 1 GRAM, QOD
     Route: 042
     Dates: start: 20130413
  25. OCTREOTIDE [Concomitant]
     Active Substance: OCTREOTIDE
     Indication: Drainage
     Dosage: 15 MILLILITER, TID
     Route: 042
     Dates: start: 20130404, end: 20220709
  26. OCTREOTIDE [Concomitant]
     Active Substance: OCTREOTIDE
     Indication: Short-bowel syndrome
     Dosage: 50 MICROGRAM, QID
     Route: 058
     Dates: start: 20220711
  27. OCTREOTIDE [Concomitant]
     Active Substance: OCTREOTIDE
     Dosage: 25 MICROGRAM, TID
     Route: 058
     Dates: start: 20221104
  28. OMEGA-3 FATTY ACIDS [Concomitant]
     Active Substance: OMEGA-3 FATTY ACIDS
     Indication: Fatty acid deficiency
     Dosage: 1 GRAM, QD
     Route: 048
     Dates: start: 20100702
  29. CREON [Concomitant]
     Active Substance: PANCRELIPASE AMYLASE\PANCRELIPASE LIPASE\PANCRELIPASE PROTEASE
     Indication: Malabsorption
     Dosage: 48000 INTERNATIONAL UNIT
     Route: 048
     Dates: start: 20171101
  30. PAREGORIC [Concomitant]
     Active Substance: MORPHINE
     Indication: Drainage
     Dosage: 2 MILLIGRAM
     Route: 048
     Dates: start: 20170830
  31. SELENIUM [Concomitant]
     Active Substance: SELENIUM
     Indication: Mineral deficiency
     Dosage: 200 MILLIGRAM, QD
     Route: 048
     Dates: start: 20100908
  32. SPIRONOLACTONE [Concomitant]
     Active Substance: SPIRONOLACTONE
     Indication: Cardiomyopathy
     Dosage: 25 MILLIGRAM, QD
     Route: 048
     Dates: start: 20140930
  33. TRADJENTA [Concomitant]
     Active Substance: LINAGLIPTIN
     Indication: Diabetes mellitus
     Dosage: 5 MILLIGRAM
     Route: 048
     Dates: start: 20201119
  34. ZOFRAN [Concomitant]
     Active Substance: ONDANSETRON HYDROCHLORIDE
     Indication: Nausea
     Dosage: 4 MILLIGRAM
     Route: 042
     Dates: start: 20220709, end: 20220713
  35. ZOFRAN [Concomitant]
     Active Substance: ONDANSETRON HYDROCHLORIDE
     Dosage: 4 MILLIGRAM
     Route: 042
     Dates: start: 20220802, end: 20220802
  36. TYLENOL [Concomitant]
     Active Substance: ACETAMINOPHEN
     Indication: Abdominal pain
     Dosage: 650 MILLIGRAM
     Route: 048
     Dates: start: 20220709, end: 20220713
  37. TUMS [Concomitant]
     Active Substance: CALCIUM CARBONATE
     Indication: Nausea
     Dosage: 1000 MILLIGRAM
     Route: 048
     Dates: start: 20220709, end: 20220713
  38. SODIUM CHLORIDE [Concomitant]
     Active Substance: SODIUM CHLORIDE
     Indication: Dehydration
     Dosage: 1000 MILLILITER
     Route: 042
     Dates: start: 20220709, end: 20220713
  39. HYDROCODONE [Concomitant]
     Active Substance: HYDROCODONE
     Indication: Pain
     Dosage: 5 MILLIGRAM
     Route: 048
     Dates: start: 20220709, end: 20220713
  40. MECLIZINE [Concomitant]
     Active Substance: MECLIZINE HYDROCHLORIDE
     Indication: Nausea
     Dosage: 50 MILLIGRAM
     Route: 048
     Dates: start: 20220802, end: 20220802
  41. VASCEPA [Concomitant]
     Active Substance: ICOSAPENT ETHYL
     Indication: Hyperlipidaemia
     Dosage: 4 GRAM, BID
     Route: 048
     Dates: start: 20221104
  42. LIDOCAINE [Concomitant]
     Active Substance: LIDOCAINE
     Indication: Local anaesthesia
     Dosage: 5 PERCENT, SINGLE
     Route: 062
     Dates: start: 20221104, end: 20221104

REACTIONS (8)
  - Hyperbilirubinaemia [Recovered/Resolved]
  - Hypomagnesaemia [Recovered/Resolved]
  - Acute kidney injury [Recovered/Resolved with Sequelae]
  - Gastroenteritis [Recovered/Resolved]
  - Anaemia [Recovered/Resolved]
  - Renal cyst [Recovered/Resolved]
  - Leukocytosis [Recovered/Resolved]
  - Hypokalaemia [Recovered/Resolved]

NARRATIVE: CASE EVENT DATE: 20220709
